FAERS Safety Report 5956730-3 (Version None)
Quarter: 2008Q4

REPORT INFORMATION
  Report Type: 
  Country: None (occurrence: None)
  Receive Date: 20081031
  Receipt Date: 20080808
  Transmission Date: 20090506
  Serious: No
  Sender: FDA-Public Use
  Company Number: 2008PV036403

PATIENT
  Age: 59 Year
  Sex: Male

DRUGS (4)
  1. SYMLIN [Suspect]
     Indication: TYPE 2 DIABETES MELLITUS
     Dosage: 60 MCG;TID;SC
     Route: 058
     Dates: start: 20080808
  2. NOVOLOG [Concomitant]
  3. LANTUS [Concomitant]
  4. BYETTA [Concomitant]

REACTIONS (1)
  - SOMNOLENCE [None]
